FAERS Safety Report 18873254 (Version 2)
Quarter: 2021Q1

REPORT INFORMATION
  Report Type: Spontaneous
  Country: JP (occurrence: JP)
  Receive Date: 20210210
  Receipt Date: 20210310
  Transmission Date: 20210420
  Serious: Yes (Hospitalization)
  Sender: FDA-Public Use
  Company Number: JP-BAYER-2021-057640

PATIENT
  Age: 84 Year
  Sex: Male
  Weight: 56 kg

DRUGS (11)
  1. TELMISARTAN. [Concomitant]
     Active Substance: TELMISARTAN
     Indication: HYPERTENSION
     Dosage: DAILY DOSE 20 MG
     Route: 048
  2. AMITIZA [Concomitant]
     Active Substance: LUBIPROSTONE
     Indication: CONSTIPATION
     Dosage: DAILY DOSE 48 MG
     Route: 048
  3. SENNOSIDE A [Concomitant]
     Active Substance: SENNOSIDE A
     Indication: CONSTIPATION
     Dosage: DAILY DOSE 36 MG
     Route: 048
  4. LEUPRORELIN ACETATE [Concomitant]
     Active Substance: LEUPROLIDE ACETATE
     Dosage: DAILY DOSE 3.75 MG
     Dates: start: 20210118, end: 20210118
  5. DOMPERIDONE [Concomitant]
     Active Substance: DOMPERIDONE
     Indication: NAUSEA
     Dosage: DAILY DOSE 10 MG
     Route: 048
  6. COMTAN [Concomitant]
     Active Substance: ENTACAPONE
     Indication: PARKINSON^S DISEASE
     Dosage: DAILY DOSE 300 MG
     Route: 048
  7. LEVODOPA [Concomitant]
     Active Substance: LEVODOPA
     Indication: PARKINSON^S DISEASE
     Dosage: DAILY DOSE 900 MG
     Route: 048
  8. FP?OD [Concomitant]
     Active Substance: SELEGILINE HYDROCHLORIDE
     Indication: PARKINSON^S DISEASE
     Dosage: DAILY DOSE 5 MG
     Route: 048
  9. NUBEQA [Suspect]
     Active Substance: DAROLUTAMIDE
     Indication: PROSTATE CANCER
     Dosage: 300 MG, BID
     Route: 048
     Dates: start: 20210118, end: 20210201
  10. TAMSULOSIN HYDROCHLORIDE OD [Concomitant]
     Active Substance: TAMSULOSIN HYDROCHLORIDE
     Indication: BENIGN PROSTATIC HYPERPLASIA
     Dosage: DAILY DOSE .2 MG
     Route: 048
  11. LEUPRORELIN ACETATE [Concomitant]
     Active Substance: LEUPROLIDE ACETATE
     Dosage: DAILY DOSE 3.75 MG

REACTIONS (7)
  - Malaise [None]
  - Pyrexia [Recovering/Resolving]
  - Physical deconditioning [None]
  - Off label use [None]
  - Blood creatinine increased [None]
  - Rash [Recovering/Resolving]
  - Blood lactate dehydrogenase increased [None]

NARRATIVE: CASE EVENT DATE: 202101
